FAERS Safety Report 8828778 (Version 2)
Quarter: 2012Q4

REPORT INFORMATION
  Report Type: 
  Country: US (occurrence: US)
  Receive Date: 20121008
  Receipt Date: 20121119
  Transmission Date: 20130627
  Serious: Yes (Hospitalization)
  Sender: FDA-Public Use
  Company Number: US-ASTRAZENECA-2012SE74978

PATIENT
  Age: 92 Year
  Sex: Female
  Weight: 72.6 kg

DRUGS (13)
  1. LISINOPRIL [Suspect]
     Indication: BLOOD PRESSURE ABNORMAL
     Route: 048
  2. SEROQUEL XR [Suspect]
     Indication: HALLUCINATION
     Route: 048
  3. SEROQUEL XR [Suspect]
     Indication: HALLUCINATION
     Route: 048
     Dates: start: 20120515, end: 20120718
  4. SEROQUEL XR [Suspect]
     Indication: HALLUCINATION
     Route: 048
     Dates: start: 20120718
  5. SEROQUEL XR [Suspect]
     Indication: HALLUCINATION
     Route: 048
  6. LOPRESSOR [Concomitant]
     Indication: BLOOD PRESSURE ABNORMAL
  7. DYAZIDE [Concomitant]
     Indication: BLOOD PRESSURE ABNORMAL
     Dosage: UNKNOWN
  8. NAMENDA [Concomitant]
  9. LASIX [Concomitant]
  10. POTASSIUM [Concomitant]
  11. ARACEPT [Concomitant]
  12. DEPAKOTE ER [Concomitant]
  13. BABY ASPIRIN [Concomitant]
     Indication: CARDIAC DISORDER

REACTIONS (9)
  - Psychotic disorder [Unknown]
  - Malaise [Unknown]
  - Blood pressure abnormal [Unknown]
  - Cardiac disorder [Unknown]
  - Feeling abnormal [Unknown]
  - Weight increased [Unknown]
  - Fall [Unknown]
  - Delusion [Unknown]
  - Hypersomnia [Unknown]
